FAERS Safety Report 22964401 (Version 3)
Quarter: 2023Q4

REPORT INFORMATION
  Report Type: Report from Study
  Country: DE (occurrence: DE)
  Receive Date: 20230921
  Receipt Date: 20231011
  Transmission Date: 20240110
  Serious: Yes (Other)
  Sender: FDA-Public Use
  Company Number: DE-002147023-NVSC2023DE177660

PATIENT
  Age: 29 Year
  Sex: Female

DRUGS (1)
  1. KESIMPTA [Suspect]
     Active Substance: OFATUMUMAB
     Indication: Relapsing multiple sclerosis
     Dosage: 20 MG, QMO
     Route: 058
     Dates: start: 20230726

REACTIONS (4)
  - Pneumonia [Unknown]
  - Rash [Recovered/Resolved]
  - Bronchitis [Unknown]
  - Hilar lymphadenopathy [Unknown]

NARRATIVE: CASE EVENT DATE: 20230726
